FAERS Safety Report 7658864-4 (Version None)
Quarter: 2011Q3

REPORT INFORMATION
  Report Type: 
  Country: None (occurrence: None)
  Receive Date: 20110805
  Receipt Date: 20110802
  Transmission Date: 20111222
  Serious: Yes (Hospitalization)
  Sender: FDA-Public Use
  Company Number: JP-PFIZER INC-2011172502

PATIENT
  Age: 81 Year
  Sex: Male

DRUGS (3)
  1. LYRICA [Suspect]
     Indication: POST HERPETIC NEURALGIA
     Dosage: UNK
     Route: 048
     Dates: start: 20110701
  2. LOXONIN [Suspect]
     Dosage: UNK
  3. CLARITIN [Suspect]
     Dosage: UNK

REACTIONS (1)
  - PLEURAL EFFUSION [None]
